FAERS Safety Report 18026654 (Version 1)
Quarter: 2020Q3

REPORT INFORMATION
  Report Type: Spontaneous
  Country: NL (occurrence: NL)
  Receive Date: 20200716
  Receipt Date: 20200716
  Transmission Date: 20201103
  Serious: Yes (Life-Threatening, Hospitalization, Other)
  Sender: FDA-Public Use
  Company Number: NL-AUROBINDO-AUR-APL-2020-034654

PATIENT
  Sex: Male
  Weight: 4 kg

DRUGS (1)
  1. SERTRALINE [Suspect]
     Active Substance: SERTRALINE HYDROCHLORIDE
     Indication: DEPRESSIVE SYMPTOM
     Dosage: 100 MILLIGRAM, ONCE A DAY
     Route: 064

REACTIONS (1)
  - Newborn persistent pulmonary hypertension [Recovering/Resolving]
